FAERS Safety Report 6516407-2 (Version None)
Quarter: 2009Q4

REPORT INFORMATION
  Report Type: 
  Country: None (occurrence: None)
  Receive Date: 20091223
  Receipt Date: 20091217
  Transmission Date: 20100525
  Serious: Yes (Hospitalization)
  Sender: FDA-Public Use
  Company Number: B0608236A

PATIENT
  Sex: Female

DRUGS (2)
  1. WELLBUTRIN SR [Suspect]
     Indication: DEPRESSION
     Dosage: 150MG PER DAY
     Route: 048
     Dates: start: 20030927, end: 20040302
  2. ATIVAN [Concomitant]
     Dates: start: 20030927, end: 20040302

REACTIONS (2)
  - FALL [None]
  - RADIUS FRACTURE [None]
